FAERS Safety Report 7542048-4 (Version None)
Quarter: 2011Q2

REPORT INFORMATION
  Report Type: 
  Country: None (occurrence: None)
  Receive Date: 20110613
  Receipt Date: 20110607
  Transmission Date: 20111010
  Serious: Yes (Death, Other)
  Sender: FDA-Public Use
  Company Number: RS-JNJFOC-20110509409

PATIENT
  Sex: Female
  Weight: 100 kg

DRUGS (12)
  1. RISPERDAL CONSTA [Suspect]
     Route: 030
     Dates: start: 20101025, end: 20110411
  2. RISPERDAL CONSTA [Suspect]
     Route: 030
     Dates: start: 20101025, end: 20110411
  3. VENLAFAXINE [Concomitant]
     Indication: SCHIZOAFFECTIVE DISORDER
     Dosage: 75 MG EVENING
     Route: 048
  4. METOPROLOL SUCCINATE [Concomitant]
     Indication: HYPERTENSION
     Route: 048
  5. RISPERDAL CONSTA [Suspect]
     Indication: PSYCHOTIC DISORDER
     Route: 030
     Dates: start: 20101025
  6. FLUNEURIN [Concomitant]
     Indication: SCHIZOAFFECTIVE DISORDER
     Route: 048
  7. LORAZEPAM [Concomitant]
     Indication: SCHIZOAFFECTIVE DISORDER
     Route: 048
  8. AMINOFILIN [Concomitant]
     Indication: CHRONIC OBSTRUCTIVE PULMONARY DISEASE
     Route: 048
  9. LAMICTAL [Concomitant]
     Indication: SCHIZOAFFECTIVE DISORDER
     Route: 048
  10. RISPERDAL CONSTA [Suspect]
     Indication: SCHIZOAFFECTIVE DISORDER
     Route: 030
     Dates: start: 20101025
  11. LOMETAZID [Concomitant]
     Indication: HYPERTENSION
     Route: 048
  12. OMEPROL [Concomitant]
     Indication: GASTROOESOPHAGEAL REFLUX DISEASE

REACTIONS (1)
  - COMPLETED SUICIDE [None]
